FAERS Safety Report 18542827 (Version 1)
Quarter: 2020Q4

REPORT INFORMATION
  Report Type: Report from Study
  Country: AT (occurrence: AT)
  Receive Date: 20201125
  Receipt Date: 20201125
  Transmission Date: 20210114
  Serious: Yes (Other)
  Sender: FDA-Public Use
  Company Number: AT-AMGEN-AUTNI2020190592

PATIENT
  Age: 60 Year
  Sex: Male
  Weight: 75 kg

DRUGS (26)
  1. FLUOROURACIL. [Suspect]
     Active Substance: FLUOROURACIL
     Dosage: 766 MILLIGRAM
     Route: 040
     Dates: start: 20200715
  2. FOLINIC ACID [Suspect]
     Active Substance: LEUCOVORIN
     Indication: COLORECTAL CANCER METASTATIC
     Dosage: 385 MILLIGRAM
     Route: 065
     Dates: start: 20200616
  3. OXALIPLATIN. [Suspect]
     Active Substance: OXALIPLATIN
     Dosage: 124 MILLIGRAM
     Route: 065
     Dates: start: 20200909
  4. PANITUMUMAB [Suspect]
     Active Substance: PANITUMUMAB
     Indication: COLORECTAL CANCER METASTATIC
     Dosage: 450 MILLIGRAM
     Route: 042
     Dates: start: 20200616
  5. OXALIPLATIN. [Suspect]
     Active Substance: OXALIPLATIN
     Indication: COLORECTAL CANCER METASTATIC
     Dosage: 164 MILLIGRAM
     Route: 065
     Dates: start: 20200616
  6. THROMBO ASS [Concomitant]
     Active Substance: ASPIRIN
     Indication: THROMBOSIS PROPHYLAXIS
     Dosage: 100 MILLIGRAM, QD
     Route: 048
  7. FORTECORTIN [DEXAMETHASONE] [Concomitant]
     Active Substance: DEXAMETHASONE
     Indication: PEPTIC ULCER
     Dosage: 4 MILLIGRAM, QD
     Route: 048
     Dates: start: 20200616, end: 20200909
  8. PANITUMUMAB [Suspect]
     Active Substance: PANITUMUMAB
     Dosage: 450 MILLIGRAM
     Route: 042
     Dates: start: 20201104
  9. MINOSTAD [Concomitant]
     Indication: RASH
     Dosage: 50 MILLIGRAM, BID
     Route: 048
     Dates: start: 20200617
  10. FLUOROURACIL. [Suspect]
     Active Substance: FLUOROURACIL
     Dosage: 1150 MILLIGRAM
     Route: 042
     Dates: start: 20200715
  11. AMLODIPINE [Concomitant]
     Active Substance: AMLODIPINE BESYLATE
     Indication: HYPERTENSION
     Dosage: 10 MILLIGRAM
     Route: 048
  12. SYMBICORT [Concomitant]
     Active Substance: BUDESONIDE\FORMOTEROL FUMARATE DIHYDRATE
     Indication: CHRONIC OBSTRUCTIVE PULMONARY DISEASE
     Dosage: 2 UNK, BID
  13. PANITUMUMAB [Suspect]
     Active Substance: PANITUMUMAB
     Dosage: 444 MILLIGRAM
     Route: 042
     Dates: start: 20200715
  14. FOLINIC ACID [Suspect]
     Active Substance: LEUCOVORIN
     Dosage: 383 MILLIGRAM
     Route: 065
     Dates: start: 20200715
  15. FOLINIC ACID [Suspect]
     Active Substance: LEUCOVORIN
     Dosage: 390 MILLIGRAM
     Route: 065
     Dates: start: 20200909
  16. FOLINIC ACID [Suspect]
     Active Substance: LEUCOVORIN
     Dosage: 385 MILLIGRAM
     Route: 065
     Dates: start: 20201104
  17. FLUOROURACIL. [Suspect]
     Active Substance: FLUOROURACIL
     Dosage: 1156 MILLIGRAM
     Route: 042
     Dates: start: 20201104
  18. OXALIPLATIN. [Suspect]
     Active Substance: OXALIPLATIN
     Dosage: 163 MILLIGRAM
     Route: 065
     Dates: start: 20200715
  19. OXALIPLATIN. [Suspect]
     Active Substance: OXALIPLATIN
     Dosage: 123 MILLIGRAM
     Route: 065
     Dates: start: 20201104
  20. GRANISETRON B BRAUN [Concomitant]
     Indication: NAUSEA
     Dosage: 2 MILLIGRAM, AS NECESSARY
     Route: 048
     Dates: start: 20200616, end: 20200909
  21. PANITUMUMAB [Suspect]
     Active Substance: PANITUMUMAB
     Dosage: 462 MILLIGRAM
     Route: 042
     Dates: start: 20200909
  22. FLUOROURACIL. [Suspect]
     Active Substance: FLUOROURACIL
     Indication: COLORECTAL CANCER METASTATIC
     Dosage: 1156 MILLIGRAM
     Route: 042
     Dates: start: 20200616
  23. FLUOROURACIL. [Suspect]
     Active Substance: FLUOROURACIL
     Dosage: 1169 MILLIGRAM
     Route: 042
     Dates: start: 20200909
  24. FLUOROURACIL. [Suspect]
     Active Substance: FLUOROURACIL
     Dosage: 771 MILLIGRAM
     Route: 040
     Dates: start: 20200616
  25. PASPERTIN [METOCLOPRAMIDE HYDROCHLORIDE] [Concomitant]
     Active Substance: METOCLOPRAMIDE HYDROCHLORIDE
     Indication: NAUSEA
     Dosage: 10 MILLIGRAM, AS NECESSARY
     Route: 048
     Dates: start: 20200616, end: 20200909
  26. ENTEROBENE [Concomitant]
     Indication: DIARRHOEA
     Dosage: 2 MILLIGRAM, AS NECESSARY
     Route: 048
     Dates: start: 20200616, end: 20200909

REACTIONS (1)
  - Polyneuropathy [Not Recovered/Not Resolved]

NARRATIVE: CASE EVENT DATE: 20201118
